FAERS Safety Report 21400553 (Version 1)
Quarter: 2022Q4

REPORT INFORMATION
  Report Type: Spontaneous
  Country: FR (occurrence: FR)
  Receive Date: 20221003
  Receipt Date: 20221003
  Transmission Date: 20230112
  Serious: Yes (Hospitalization, Other)
  Sender: FDA-Public Use
  Company Number: FR-AFSSAPS-GR20222072

PATIENT
  Age: 77 Year
  Sex: Male
  Weight: 76.2 kg

DRUGS (3)
  1. MEROPENEM [Suspect]
     Active Substance: MEROPENEM
     Indication: Sepsis
     Dosage: 6 GRAM
     Route: 042
     Dates: start: 20220724, end: 20220804
  2. CASPOFUNGIN ACETATE [Suspect]
     Active Substance: CASPOFUNGIN ACETATE
     Indication: Sepsis
     Dosage: 50 MILLIGRAM
     Route: 042
     Dates: start: 20220727, end: 20220729
  3. DAPTOMYCIN [Suspect]
     Active Substance: DAPTOMYCIN
     Indication: Bacteraemia
     Dosage: 800 MILLIGRAM
     Route: 042
     Dates: start: 20220704, end: 20220804

REACTIONS (2)
  - Eosinophilic pneumonia [Recovering/Resolving]
  - Respiratory failure [Recovering/Resolving]

NARRATIVE: CASE EVENT DATE: 20220701
